FAERS Safety Report 16871503 (Version 1)
Quarter: 2019Q4

REPORT INFORMATION
  Report Type: Spontaneous
  Country: US (occurrence: US)
  Receive Date: 20190930
  Receipt Date: 20190930
  Transmission Date: 20200122
  Serious: No
  Sender: FDA-Public Use
  Company Number: None

PATIENT
  Age: 41 Year
  Sex: Female
  Weight: 65.25 kg

DRUGS (5)
  1. ONE-A-DAY NOS [Concomitant]
     Active Substance: MINERALS\VITAMINS
  2. IBUPROFEN. [Concomitant]
     Active Substance: IBUPROFEN
  3. SPIRULINA [Concomitant]
     Active Substance: SPIRULINA
  4. LEVAQUIN [Suspect]
     Active Substance: LEVOFLOXACIN
     Indication: URINARY TRACT INFECTION
     Dosage: ?          QUANTITY:10 TABLET(S);?
     Route: 048
     Dates: start: 20190918, end: 20190928
  5. B6 [Concomitant]
     Active Substance: PYRIDOXINE HYDROCHLORIDE

REACTIONS (6)
  - Anxiety [None]
  - Personality change [None]
  - Anger [None]
  - Panic attack [None]
  - Depression [None]
  - Agitation [None]
